FAERS Safety Report 4468885-0 (Version None)
Quarter: 2004Q4

REPORT INFORMATION
  Report Type: 
  Country: None (occurrence: None)
  Receive Date: 20041008
  Receipt Date: 20040928
  Transmission Date: 20050328
  Serious: Yes (Hospitalization, Other)
  Sender: FDA-Public Use
  Company Number: JP-JNJFOC-20040405442

PATIENT
  Sex: Male
  Weight: 53.6 kg

DRUGS (15)
  1. REMICADE [Suspect]
     Indication: ANAL FISTULA
     Route: 041
     Dates: start: 20040130
  2. REMICADE [Suspect]
     Indication: CROHN'S DISEASE
     Route: 041
     Dates: start: 20040130
  3. AZANIN [Suspect]
     Indication: CROHN'S DISEASE
     Route: 049
  4. PREDONINE [Concomitant]
     Indication: CROHN'S DISEASE
     Route: 049
  5. SOLU-CORTEF [Concomitant]
     Indication: CROHN'S DISEASE
     Route: 041
  6. PENTASA [Concomitant]
     Indication: CROHN'S DISEASE
     Dosage: 12T
     Route: 049
  7. ELENTAL [Concomitant]
     Route: 065
  8. ELENTAL [Concomitant]
     Indication: CROHN'S DISEASE
     Route: 065
  9. BERIZYMN [Concomitant]
     Route: 065
  10. URSOSAN [Concomitant]
     Route: 065
  11. PROMAC [Concomitant]
     Route: 065
  12. PROTECADIN [Concomitant]
     Route: 065
  13. PROTECADIN [Concomitant]
     Route: 065
  14. AMOBAN [Concomitant]
     Route: 065
  15. ENTERAL NUTRITION [Concomitant]

REACTIONS (3)
  - DRUG INTERACTION [None]
  - FATIGUE [None]
  - SWELLING FACE [None]
